FAERS Safety Report 4357603-2 (Version None)
Quarter: 2004Q2

REPORT INFORMATION
  Report Type: 
  Country: None (occurrence: None)
  Receive Date: 20040510
  Receipt Date: 20040426
  Transmission Date: 20050107
  Serious: Yes (Death)
  Sender: FDA-Public Use
  Company Number: 2004211324FR

PATIENT
  Age: 37 Year
  Sex: Female

DRUGS (13)
  1. SOLU-MEDROL [Suspect]
     Dosage: 20 MG, DAILY, IV
     Route: 042
     Dates: start: 20040302, end: 20040305
  2. ADRIBLASTINE (DOXORUBICIN HYDROCHLORIDE) SOLUTION, STERILE, 50 MG [Suspect]
     Dosage: 140 MG, DAILY, IV
     Route: 042
     Dates: start: 20040305, end: 20040305
  3. MABTHER (RITUXIMAB) [Suspect]
     Dosage: 700 MG, DAILY, IV
     Route: 042
     Dates: start: 20040305, end: 20040305
  4. ENDOXAN/CY(CYCLOPHOSPHAMIDE) 500MG [Suspect]
     Dosage: 2 G, DAILY, IV
     Route: 042
     Dates: start: 20040302, end: 20040302
  5. SULFASALAZINE [Concomitant]
  6. METHOTREXATE [Concomitant]
  7. ARAVA [Concomitant]
  8. CORTANCYL [Concomitant]
  9. RISEDRONIC ACID (RISEDRONIC ACID) [Concomitant]
  10. CACIT D3 [Concomitant]
  11. DAFALGAN CODEINE [Concomitant]
  12. INDOCIN [Concomitant]
  13. METHOTREXATE [Concomitant]

REACTIONS (6)
  - ANAEMIA [None]
  - DRUG HYPERSENSITIVITY [None]
  - DRUG INEFFECTIVE [None]
  - ESCHERICHIA SEPSIS [None]
  - ESCHERICHIA URINARY TRACT INFECTION [None]
  - SEPTIC SHOCK [None]
